FAERS Safety Report 24950624 (Version 1)
Quarter: 2025Q1

REPORT INFORMATION
  Report Type: Spontaneous
  Country: US (occurrence: US)
  Receive Date: 20250210
  Receipt Date: 20250210
  Transmission Date: 20250409
  Serious: Yes (Life-Threatening, Hospitalization)
  Sender: SERVIER
  Company Number: US-SERVIER-S25001526

PATIENT

DRUGS (4)
  1. ASPARLAS [Suspect]
     Active Substance: CALASPARGASE PEGOL-MKNL
     Indication: Acute lymphocytic leukaemia
     Route: 042
     Dates: start: 20240928, end: 20240928
  2. ASPARLAS [Suspect]
     Active Substance: CALASPARGASE PEGOL-MKNL
     Route: 042
     Dates: start: 20250127, end: 20250127
  3. DIPHENHYDRAMINE [Concomitant]
     Active Substance: DIPHENHYDRAMINE
     Indication: Premedication
     Route: 048
     Dates: start: 20250127, end: 20250127
  4. FAMOTIDINE [Concomitant]
     Active Substance: FAMOTIDINE
     Indication: Premedication
     Route: 048
     Dates: start: 20250127, end: 20250127

REACTIONS (1)
  - Anaphylactic reaction [Recovered/Resolved]

NARRATIVE: CASE EVENT DATE: 20250127
